FAERS Safety Report 4595941-9 (Version None)
Quarter: 2005Q1

REPORT INFORMATION
  Report Type: 
  Country: None (occurrence: None)
  Receive Date: 20050224
  Receipt Date: 20050205
  Transmission Date: 20050727
  Serious: Yes (Hospitalization)
  Sender: FDA-Public Use
  Company Number: EWC050242613

PATIENT
  Age: 59 Year
  Sex: Female

DRUGS (5)
  1. OLANZAPINE-ORA; (OLANZAPINE) [Suspect]
     Indication: SCHIZOPHRENIA
     Dosage: 5 MG/2 DAY
     Dates: start: 20000101
  2. OMEPRAZOLE [Concomitant]
  3. CYCLOCUR [Concomitant]
  4. IBUPROFEN [Concomitant]
  5. ATARAX [Concomitant]

REACTIONS (2)
  - CARDIAC FAILURE [None]
  - CARDIOMYOPATHY [None]
